FAERS Safety Report 16613849 (Version 1)
Quarter: 2019Q3

REPORT INFORMATION
  Report Type: Spontaneous
  Country: US (occurrence: US)
  Receive Date: 20190608
  Receipt Date: 20190608
  Transmission Date: 20191004
  Serious: No
  Sender: FDA-Public Use
  Company Number: None

PATIENT
  Age: 87 Year
  Sex: Female

DRUGS (1)
  1. EXEMESTANE 25MG TAB [Suspect]
     Active Substance: EXEMESTANE
     Route: 048
     Dates: start: 20180620

REACTIONS (2)
  - Product substitution issue [None]
  - Gastric ulcer [None]

NARRATIVE: CASE EVENT DATE: 20190608
